FAERS Safety Report 18481973 (Version 1)
Quarter: 2020Q4

REPORT INFORMATION
  Report Type: Spontaneous
  Country: US (occurrence: US)
  Receive Date: 20201109
  Receipt Date: 20201109
  Transmission Date: 20210114
  Serious: No
  Sender: FDA-Public Use
  Company Number: US-PFIZER INC-2020222368

PATIENT
  Age: 36 Year
  Sex: Male

DRUGS (1)
  1. NIVESTYM [Suspect]
     Active Substance: FILGRASTIM-AAFI
     Indication: NEUTROPENIA
     Dosage: 480 UG (1- 480MCG/.08ML SQ ON DAYS 2, 3, 4, 16, 17, 18 OF EACH CHEMO CYCLE)
     Route: 058

REACTIONS (2)
  - Injection site pain [Unknown]
  - Off label use [Unknown]
